FAERS Safety Report 6205556-4 (Version None)
Quarter: 2009Q2

REPORT INFORMATION
  Report Type: 
  Country: None (occurrence: None)
  Receive Date: 20090527
  Receipt Date: 20090401
  Transmission Date: 20091009
  Serious: No
  Sender: FDA-Public Use
  Company Number: US-ABBOTT-09P-163-0565871-00

PATIENT
  Age: 62 Year
  Sex: Female

DRUGS (5)
  1. SIMCOR [Suspect]
     Indication: POOR PERIPHERAL CIRCULATION
     Dosage: 500/20
     Dates: start: 20081201
  2. PLAVIX [Suspect]
     Indication: POOR PERIPHERAL CIRCULATION
     Route: 048
     Dates: start: 20081201
  3. METFORMIN HCL [Concomitant]
     Indication: DIABETES MELLITUS
  4. ROSIGLITAZONE MALEATE [Concomitant]
     Indication: DIABETES MELLITUS
  5. GLIPIZIDE [Concomitant]
     Indication: DIABETES MELLITUS

REACTIONS (2)
  - DIZZINESS [None]
  - HYPOAESTHESIA [None]
